FAERS Safety Report 23180580 (Version 2)
Quarter: 2024Q2

REPORT INFORMATION
  Report Type: Spontaneous
  Country: US (occurrence: US)
  Receive Date: 20231114
  Receipt Date: 20240610
  Transmission Date: 20240716
  Serious: No
  Sender: FDA-Public Use
  Company Number: US-VKT-000316

PATIENT
  Sex: Male

DRUGS (2)
  1. TADALAFIL [Suspect]
     Active Substance: TADALAFIL
     Indication: Erectile dysfunction
     Route: 065
  2. FINASTERIDE [Suspect]
     Active Substance: FINASTERIDE
     Indication: Prostatomegaly
     Route: 065

REACTIONS (8)
  - Dysuria [Unknown]
  - Product substitution issue [Unknown]
  - Therapeutic product effect incomplete [Unknown]
  - Prostatomegaly [Unknown]
  - Condition aggravated [Unknown]
  - Drug ineffective [Unknown]
  - Therapeutic response changed [Unknown]
  - Product formulation issue [Unknown]
